FAERS Safety Report 12271367 (Version 1)
Quarter: 2016Q2

REPORT INFORMATION
  Report Type: Other
  Country: CN (occurrence: CN)
  Receive Date: 20160415
  Receipt Date: 20160415
  Transmission Date: 20160815
  Serious: Yes (Hospitalization, Other)
  Sender: FDA-Public Use
  Company Number: CN-ASTELLAS-2016US014272

PATIENT
  Age: 5 Year
  Sex: Female
  Weight: 21 kg

DRUGS (6)
  1. DIPYRIDAMOLE. [Concomitant]
     Active Substance: DIPYRIDAMOLE
     Indication: THROMBOCYTOSIS
     Route: 048
     Dates: start: 20151016, end: 20151026
  2. PROGRAF [Suspect]
     Active Substance: TACROLIMUS\TACROLIMUS ANHYDROUS
     Indication: IMMUNOSUPPRESSANT DRUG THERAPY
     Route: 048
     Dates: start: 20151014, end: 20151026
  3. PREDNISONE ACETATE [Concomitant]
     Active Substance: PREDNISONE ACETATE
     Indication: IMMUNOSUPPRESSANT DRUG THERAPY
     Route: 048
     Dates: start: 20151006, end: 20151026
  4. SODIUM FERULATE [Concomitant]
     Indication: ADJUVANT THERAPY
     Route: 048
     Dates: start: 20151016, end: 20151026
  5. PROGRAF [Suspect]
     Active Substance: TACROLIMUS\TACROLIMUS ANHYDROUS
     Indication: NEPHROTIC SYNDROME
  6. CAPTOPRIL. [Concomitant]
     Active Substance: CAPTOPRIL
     Indication: SECONDARY HYPERTENSION
     Dosage: 25 MG, 4 TIMES DAILY (EVERY 6 HOURS)
     Route: 048
     Dates: start: 20151006, end: 20151026

REACTIONS (5)
  - Off label use [Unknown]
  - Hypertension [Recovering/Resolving]
  - Blindness transient [Recovering/Resolving]
  - Restlessness [Recovering/Resolving]
  - Anxiety [Recovering/Resolving]

NARRATIVE: CASE EVENT DATE: 20151014
